FAERS Safety Report 17426568 (Version 1)
Quarter: 2020Q1

REPORT INFORMATION
  Report Type: Spontaneous
  Country: ES (occurrence: ES)
  Receive Date: 20200218
  Receipt Date: 20200218
  Transmission Date: 20200409
  Serious: Yes (Other)
  Sender: FDA-Public Use
  Company Number: ES-ALKEM LABORATORIES LIMITED-ES-ALKEM-2019-05779

PATIENT
  Age: 15 Month
  Sex: Male

DRUGS (7)
  1. LINEZOLID. [Suspect]
     Active Substance: LINEZOLID
     Indication: TUBERCULOSIS
  2. ETHIONAMIDE [Concomitant]
     Active Substance: ETHIONAMIDE
     Indication: LYMPH NODE TUBERCULOSIS
     Dosage: 125 MILLIGRAM EVERY 12 HOUR
     Route: 048
  3. CAPREOMYCIN [Concomitant]
     Active Substance: CAPREOMYCIN
     Indication: LYMPH NODE TUBERCULOSIS
     Dosage: 175 MILLIGRAM, QD
     Route: 058
  4. CYCLOSERINE. [Concomitant]
     Active Substance: CYCLOSERINE
     Indication: LYMPH NODE TUBERCULOSIS
     Dosage: 125 MILLIGRAM EVERY 12 HOUR
     Route: 048
  5. MOXIFLOXACIN. [Concomitant]
     Active Substance: MOXIFLOXACIN
     Indication: LYMPH NODE TUBERCULOSIS
     Dosage: 100 MILLIGRAM, QD
     Route: 048
  6. LINEZOLID. [Suspect]
     Active Substance: LINEZOLID
     Indication: LYMPH NODE TUBERCULOSIS
     Dosage: 60 MILLIGRAM EVERY 12 HOUR
     Route: 048
  7. PYRIDOXINE [Concomitant]
     Active Substance: PYRIDOXINE
     Indication: LYMPH NODE TUBERCULOSIS
     Dosage: 25 MILLIGRAM, QD
     Route: 048

REACTIONS (1)
  - Neutropenia [Unknown]
